FAERS Safety Report 10775582 (Version 1)
Quarter: 2015Q1

REPORT INFORMATION
  Report Type: Spontaneous
  Country: US (occurrence: None)
  Receive Date: 20150205
  Receipt Date: 20150205
  Transmission Date: 20150721
  Serious: Yes (Hospitalization)
  Sender: FDA-Public Use
  Company Number: FK201500410

PATIENT
  Age: 69 Year
  Sex: Female

DRUGS (1)
  1. AMIODARONE HCL [Suspect]
     Active Substance: AMIODARONE HYDROCHLORIDE
     Indication: ATRIAL FIBRILLATION
     Dosage: STOPPED AT ADMISSION

REACTIONS (13)
  - Hypothermia [None]
  - Hypertension [None]
  - Leukocytosis [None]
  - Anaemia macrocytic [None]
  - Hyperkalaemia [None]
  - Myxoedema coma [None]
  - Myoclonus [None]
  - Sinus bradycardia [None]
  - Respiratory acidosis [None]
  - Azotaemia [None]
  - Tachypnoea [None]
  - Hyponatraemia [None]
  - Cardiomegaly [None]
